FAERS Safety Report 18588386 (Version 1)
Quarter: 2020Q4

REPORT INFORMATION
  Report Type: Spontaneous
  Country: US (occurrence: US)
  Receive Date: 20201207
  Receipt Date: 20201207
  Transmission Date: 20210114
  Serious: No
  Sender: FDA-Public Use
  Company Number: US-SIGMAPHARM LABORATORIES, LLC-2020SIG00114

PATIENT
  Sex: Female
  Weight: 54.43 kg

DRUGS (6)
  1. XYREM [Concomitant]
     Active Substance: SODIUM OXYBATE
  2. LIOTHYRONINE SODIUM. [Suspect]
     Active Substance: LIOTHYRONINE SODIUM
     Dosage: 5 ?G, 2X/DAY; ONE WITH BREAKFAST AND ONE WITH LUNCH BEFORE 2 PM
     Route: 048
  3. LIOTHYRONINE SODIUM. [Suspect]
     Active Substance: LIOTHYRONINE SODIUM
     Dosage: 5 ?G, 2X/DAY; ONE WITH BREAKFAST AND ONE WITH LUNCH BEFORE 2 PM
     Route: 048
     Dates: start: 2020, end: 2020
  4. CYTOMEL [Suspect]
     Active Substance: LIOTHYRONINE SODIUM
     Indication: HYPOTHYROIDISM
     Dosage: 5 MCG, 2X/DAY; ONE WITH BREAKFAST AND ONE WITH LUNCH BEFORE 2 PM
     Route: 048
     Dates: start: 202009, end: 202011
  5. SYNTHROID [Concomitant]
     Active Substance: LEVOTHYROXINE SODIUM
     Dosage: 68.5 MCG, 1X/DAY
     Route: 048
  6. UNSPECIFIED MEDICATIONS [Concomitant]
     Active Substance: UNSPECIFIED INGREDIENT
     Dosage: UNK

REACTIONS (3)
  - Constipation [Recovering/Resolving]
  - Product dispensing error [Recovered/Resolved]
  - Product substitution issue [Not Recovered/Not Resolved]
